FAERS Safety Report 15547757 (Version 1)
Quarter: 2018Q4

REPORT INFORMATION
  Report Type: Spontaneous
  Country: US (occurrence: US)
  Receive Date: 20181018
  Receipt Date: 20181018
  Transmission Date: 20190205
  Serious: No
  Sender: FDA-Public Use
  Company Number: None

PATIENT
  Age: 28 Year
  Weight: 81.65 kg

DRUGS (2)
  1. TROSPIUM 20MG [Suspect]
     Active Substance: TROSPIUM CHLORIDE
     Indication: SPINAL CORD INJURY
     Route: 048
  2. OXYBUTYNIN 5MG [Suspect]
     Active Substance: OXYBUTYNIN
     Indication: NEUROGENIC BLADDER
     Route: 048

REACTIONS (2)
  - Dry mouth [None]
  - Post procedural urine leak [None]

NARRATIVE: CASE EVENT DATE: 20181001
